FAERS Safety Report 6285229-2 (Version None)
Quarter: 2009Q3

REPORT INFORMATION
  Report Type: 
  Country: None (occurrence: None)
  Receive Date: 20090727
  Receipt Date: 20090722
  Transmission Date: 20100115
  Serious: No
  Sender: FDA-Public Use
  Company Number: US-B.I. PHARMACEUTICALS,INC./RIDGEFIELD-2009-BP-07770BP

PATIENT
  Age: 74 Year
  Sex: Male

DRUGS (11)
  1. CATAPRES-TTS-1 [Suspect]
     Indication: HYPERTENSION
     Dosage: 0.2 MG
     Route: 061
     Dates: start: 20090330, end: 20090607
  2. NORVASC [Concomitant]
     Indication: HYPERTENSION
  3. DIOVAN [Concomitant]
     Indication: HYPERTENSION
  4. PANOKASE [Concomitant]
  5. GABAPENTIN [Concomitant]
  6. AMITRIPTYLINE HCL [Concomitant]
  7. ASPIRIN [Concomitant]
  8. FOLIC ACID [Concomitant]
  9. METOPROLOL TARTRATE [Concomitant]
  10. SIMVASTATIN [Concomitant]
  11. LANTUS [Concomitant]

REACTIONS (1)
  - APPLICATION SITE IRRITATION [None]
